FAERS Safety Report 15596950 (Version 2)
Quarter: 2018Q4

REPORT INFORMATION
  Report Type: Spontaneous
  Country: BE (occurrence: BE)
  Receive Date: 20181108
  Receipt Date: 20181204
  Transmission Date: 20190205
  Serious: Yes (Other)
  Sender: FDA-Public Use
  Company Number: BE-CLINIGEN GROUP PLC/ CLINIGEN HEALTHCARE LTD-BE-CLGN-18-012172

PATIENT
  Age: 57 Year
  Sex: Male

DRUGS (11)
  1. MEDROL [Concomitant]
     Active Substance: METHYLPREDNISOLONE
     Indication: PRODUCT USED FOR UNKNOWN INDICATION
     Dates: start: 20180523
  2. RITUXIMAB. [Concomitant]
     Active Substance: RITUXIMAB
     Dates: start: 20180615
  3. MARIBAVIR [Concomitant]
     Active Substance: MARIBAVIR
     Indication: CYTOMEGALOVIRUS INFECTION
  4. RITUXIMAB. [Concomitant]
     Active Substance: RITUXIMAB
     Dates: start: 20180608
  5. FOSCAVIR [Suspect]
     Active Substance: FOSCARNET SODIUM
     Indication: CYTOMEGALOVIRUS INFECTION
     Route: 042
     Dates: start: 20181017
  6. CICLOSPORINE [Concomitant]
     Active Substance: CYCLOSPORINE
     Indication: PRODUCT USED FOR UNKNOWN INDICATION
     Dates: end: 20180523
  7. VALCYTE [Concomitant]
     Active Substance: VALGANCICLOVIR HYDROCHLORIDE
     Indication: CYTOMEGALOVIRUS INFECTION
     Dates: start: 20180530
  8. CYMEVENE [Concomitant]
     Active Substance: GANCICLOVIR
     Indication: PRODUCT USED FOR UNKNOWN INDICATION
     Dates: start: 20180523, end: 20180529
  9. FOSCAVIR [Suspect]
     Active Substance: FOSCARNET SODIUM
     Indication: CYTOMEGALOVIRUS INFECTION
     Dates: start: 20180518, end: 20180522
  10. RITUXIMAB. [Concomitant]
     Active Substance: RITUXIMAB
     Indication: EPSTEIN-BARR VIRUS INFECTION
     Dates: start: 20180530
  11. MEROPENEM. [Concomitant]
     Active Substance: MEROPENEM
     Indication: BETA HAEMOLYTIC STREPTOCOCCAL INFECTION
     Dates: start: 201807

REACTIONS (3)
  - Peripheral swelling [Recovered/Resolved]
  - Extravasation [Recovered/Resolved]
  - Off label use [Unknown]

NARRATIVE: CASE EVENT DATE: 20181017
